FAERS Safety Report 24067118 (Version 3)
Quarter: 2024Q3

REPORT INFORMATION
  Report Type: Spontaneous
  Country: JP (occurrence: JP)
  Receive Date: 20240709
  Receipt Date: 20240911
  Transmission Date: 20241016
  Serious: Yes (Death, Life-Threatening, Other)
  Sender: ROCHE
  Company Number: JP-CHUGAI-2024022020

PATIENT
  Age: 9 Decade
  Sex: Female
  Weight: 48 kg

DRUGS (7)
  1. ALECENSA [Suspect]
     Active Substance: ALECTINIB HYDROCHLORIDE
     Indication: Non-small cell lung cancer
     Dosage: UNK
     Route: 050
     Dates: start: 20240604, end: 20240615
  2. LYRICA [Concomitant]
     Active Substance: PREGABALIN
  3. LEVOCETIRIZINE DIHYDROCHLORIDE [Concomitant]
     Active Substance: LEVOCETIRIZINE DIHYDROCHLORIDE
  4. TOVIAZ [Concomitant]
     Active Substance: FESOTERODINE FUMARATE
  5. CYMBALTA [Concomitant]
     Active Substance: DULOXETINE HYDROCHLORIDE
     Dosage: 20 MILLIGRAM, QD, AFTER BREAKFAST
     Route: 048
  6. LOXOPROFEN SODIUM [Concomitant]
     Active Substance: LOXOPROFEN SODIUM
  7. REBAMIPIDE [Concomitant]
     Active Substance: REBAMIPIDE

REACTIONS (8)
  - Vomiting [Fatal]
  - Ileus [Not Recovered/Not Resolved]
  - Respiratory failure [Fatal]
  - Pneumonia aspiration [Fatal]
  - Dizziness [Unknown]
  - Constipation [Fatal]
  - Asthenia [Not Recovered/Not Resolved]
  - Disease progression [Unknown]

NARRATIVE: CASE EVENT DATE: 20240611
